FAERS Safety Report 8066359-1 (Version None)
Quarter: 2012Q1

REPORT INFORMATION
  Report Type: 
  Country: None (occurrence: None)
  Receive Date: 20120124
  Receipt Date: 20120116
  Transmission Date: 20120608
  Serious: Yes (Death)
  Sender: FDA-Public Use
  Company Number: US-B.I. PHARMACEUTICALS,INC./RIDGEFIELD-2012-EU-00399GD

PATIENT
  Age: 33 Year
  Sex: Female

DRUGS (5)
  1. CODEINE SULFATE [Suspect]
     Route: 048
  2. LORAZEPAM [Suspect]
     Route: 048
  3. ALPRAZOLAM [Suspect]
     Route: 048
  4. PROMETHAZINE [Suspect]
     Route: 048
  5. CLONIDINE [Suspect]
     Route: 048

REACTIONS (1)
  - COMPLETED SUICIDE [None]
